FAERS Safety Report 5746082-6 (Version None)
Quarter: 2008Q2

REPORT INFORMATION
  Report Type: 
  Country: None (occurrence: None)
  Receive Date: 20080522
  Receipt Date: 20070619
  Transmission Date: 20081010
  Serious: No
  Sender: FDA-Public Use
  Company Number: A0658270A

PATIENT
  Age: 79 Year
  Sex: Female

DRUGS (3)
  1. BACTROBAN [Suspect]
     Indication: RASH
     Route: 061
     Dates: start: 20070611, end: 20070619
  2. PROPRANOLOL [Concomitant]
  3. ASPIRIN [Concomitant]

REACTIONS (1)
  - DRUG INEFFECTIVE [None]
